FAERS Safety Report 15404246 (Version 1)
Quarter: 2018Q3

REPORT INFORMATION
  Report Type: Spontaneous
  Country: US (occurrence: US)
  Receive Date: 20180919
  Receipt Date: 20180919
  Transmission Date: 20181010
  Serious: No
  Sender: FDA-Public Use
  Company Number: US-LANNETT COMPANY, INC.-US-2018LAN000970

PATIENT

DRUGS (1)
  1. LACTULOSE. [Suspect]
     Active Substance: LACTULOSE
     Indication: CONSTIPATION
     Dosage: UNK, OD, 2 TBSP ONCE A DAY EVERY MORNING
     Route: 048

REACTIONS (1)
  - Weight increased [Unknown]
